FAERS Safety Report 7483843-X (Version None)
Quarter: 2011Q2

REPORT INFORMATION
  Report Type: 
  Country: None (occurrence: None)
  Receive Date: 20110517
  Receipt Date: 20110509
  Transmission Date: 20111010
  Serious: Yes (Other)
  Sender: FDA-Public Use
  Company Number: JP-SANOFI-AVENTIS-2011SA029667

PATIENT
  Age: 48 Year
  Sex: Female

DRUGS (4)
  1. DANAZOL [Suspect]
     Route: 065
  2. DANAZOL [Suspect]
     Route: 065
  3. NORGESTREL AND ETHINYL ESTRADIOL [Concomitant]
     Route: 065
  4. DANAZOL [Suspect]
     Route: 065

REACTIONS (1)
  - METRORRHAGIA [None]
